FAERS Safety Report 23641987 (Version 3)
Quarter: 2024Q1

REPORT INFORMATION
  Report Type: Spontaneous
  Country: US (occurrence: US)
  Receive Date: 20240318
  Receipt Date: 20240328
  Transmission Date: 20240410
  Serious: No
  Sender: FDA-Public Use
  Company Number: US-GLAXOSMITHKLINE-US2024AMR032014

PATIENT
  Sex: Female

DRUGS (1)
  1. ZEJULA [Suspect]
     Active Substance: NIRAPARIB
     Indication: Ovarian cancer
     Dosage: 200 MG, QD

REACTIONS (6)
  - Vomiting [Unknown]
  - Constipation [Unknown]
  - Feeling abnormal [Recovering/Resolving]
  - Illness [Unknown]
  - Eating disorder [Unknown]
  - Platelet disorder [Recovering/Resolving]
